FAERS Safety Report 11295248 (Version 1)
Quarter: 2015Q3

REPORT INFORMATION
  Report Type: Spontaneous
  Country: US (occurrence: None)
  Receive Date: 20150722
  Receipt Date: 20150722
  Transmission Date: 20151125
  Serious: Yes (Hospitalization)
  Sender: FDA-Public Use
  Company Number: None

PATIENT
  Age: 75 Year
  Sex: Female
  Weight: 60.3 kg

DRUGS (8)
  1. ALLOPURINOL. [Suspect]
     Active Substance: ALLOPURINOL
     Indication: GOUT
     Dosage: UNKNOWN, AT LEAST 7 MONTHS
     Route: 048
  2. ALPRAZOLAM. [Concomitant]
     Active Substance: ALPRAZOLAM
  3. ATORVASTATIN [Concomitant]
     Active Substance: ATORVASTATIN
  4. DONEPEZIL. [Concomitant]
     Active Substance: DONEPEZIL
  5. RISPERIDONE. [Concomitant]
     Active Substance: RISPERIDONE
  6. PANTOPRAZOLE [Concomitant]
     Active Substance: PANTOPRAZOLE SODIUM
  7. ISOSORBIDE DINITRATE. [Concomitant]
     Active Substance: ISOSORBIDE DINITRATE
  8. ASPIRIN 81 MG [Concomitant]
     Active Substance: ASPIRIN

REACTIONS (2)
  - Exfoliative rash [None]
  - Eosinophilia [None]

NARRATIVE: CASE EVENT DATE: 20140628
